FAERS Safety Report 7493421-4 (Version None)
Quarter: 2011Q2

REPORT INFORMATION
  Report Type: 
  Country: None (occurrence: None)
  Receive Date: 20110520
  Receipt Date: 20110428
  Transmission Date: 20111010
  Serious: Yes (Other)
  Sender: FDA-Public Use
  Company Number: US-BAYER-2011-014219

PATIENT
  Age: 40 Year
  Sex: Female

DRUGS (3)
  1. YASMIN [Suspect]
     Indication: ACNE
  2. MOTRIN [Concomitant]
  3. FIORECUT [Concomitant]

REACTIONS (2)
  - PULMONARY EMBOLISM [None]
  - PAIN [None]
